FAERS Safety Report 22110664 (Version 1)
Quarter: 2023Q1

REPORT INFORMATION
  Report Type: Report from Study
  Country: BR (occurrence: BR)
  Receive Date: 20230317
  Receipt Date: 20230317
  Transmission Date: 20230417
  Serious: Yes (Other)
  Sender: FDA-Public Use
  Company Number: BR-002147023-NVSC2023BR048866

PATIENT
  Sex: Female
  Weight: 85 kg

DRUGS (6)
  1. DIOVAN HCT [Suspect]
     Active Substance: HYDROCHLOROTHIAZIDE\VALSARTAN
     Indication: Hypertension
     Dosage: UNK, 320MG/ 25MG, CONTINUOUS USE
     Route: 065
  2. DIOVAN HCT [Suspect]
     Active Substance: HYDROCHLOROTHIAZIDE\VALSARTAN
     Dosage: 0.5 DOSAGE FORM, QD (HALF TABLET)
     Route: 048
  3. ROSUVASTATIN [Suspect]
     Active Substance: ROSUVASTATIN
     Indication: Blood cholesterol increased
     Dosage: 1 DOSAGE FORM, QD
     Route: 048
  4. PERIVAX [Concomitant]
     Indication: Varicose vein
     Dosage: 1 DOSAGE FORM, QD (STARTED 2 MONTHS AGO)
     Route: 048
  5. PERIVAX [Concomitant]
     Indication: Thrombosis
  6. PURAN [Concomitant]
     Active Substance: LEVOTHYROXINE SODIUM
     Indication: Hypothyroidism
     Dosage: 1 DOSAGE FORM, QD
     Route: 048

REACTIONS (10)
  - Renal disorder [Not Recovered/Not Resolved]
  - Arrhythmia [Recovering/Resolving]
  - Thrombosis [Recovered/Resolved]
  - Vitamin D deficiency [Not Recovered/Not Resolved]
  - Hypoacusis [Unknown]
  - Visual impairment [Unknown]
  - Osteoarthritis [Not Recovered/Not Resolved]
  - Depression [Not Recovered/Not Resolved]
  - Anxiety [Not Recovered/Not Resolved]
  - Wrong technique in product usage process [Not Recovered/Not Resolved]
